FAERS Safety Report 4850849-6 (Version None)
Quarter: 2005Q4

REPORT INFORMATION
  Report Type: 
  Country: None (occurrence: None)
  Receive Date: 20051208
  Receipt Date: 20051121
  Transmission Date: 20060501
  Serious: Yes (Hospitalization)
  Sender: FDA-Public Use
  Company Number: EWC051046885

PATIENT
  Age: 58 Year
  Sex: Male

DRUGS (10)
  1. GEMCITABINE HYDROCHLORIDE (GEMCITABINE HYDROCHLORIDE) VIAL [Suspect]
     Indication: NON-SMALL CELL LUNG CANCER
     Dosage: 2200 MG; 2300 MG, OTHER, INTRAVENOUS
     Route: 042
     Dates: start: 20050623, end: 20050908
  2. GEMCITABINE HYDROCHLORIDE (GEMCITABINE HYDROCHLORIDE) VIAL [Suspect]
     Indication: NON-SMALL CELL LUNG CANCER
     Dosage: 2200 MG; 2300 MG, OTHER, INTRAVENOUS
     Route: 042
     Dates: start: 20050902
  3. METFORMIN HCL [Concomitant]
  4. ISOPHANE INSULIN (ISOPHANE INSULIN) [Concomitant]
  5. INSULIN LISPRO (INSULIN LISPRO) [Concomitant]
  6. LISINOPRIL [Concomitant]
  7. METAPROTERENOL SULFATE (METAPROTERENOL SULFATE) [Concomitant]
  8. CARBOPLATIN [Concomitant]
  9. NOVOBAN             /SCH/ (TROPISETRON HYDROCHLORIDE) [Concomitant]
  10. FORTECORTIN MONO (DEXAMETHASONE SODIUM PHOSPHATE) [Concomitant]

REACTIONS (10)
  - BLOOD CREATINE PHOSPHOKINASE INCREASED [None]
  - BLOOD CREATININE INCREASED [None]
  - BLOOD LACTATE DEHYDROGENASE INCREASED [None]
  - DIFFICULTY IN WALKING [None]
  - DYSPNOEA [None]
  - MYALGIA [None]
  - MYOSITIS [None]
  - OEDEMA [None]
  - PAIN IN EXTREMITY [None]
  - PULMONARY OEDEMA [None]
